FAERS Safety Report 17908818 (Version 1)
Quarter: 2020Q2

REPORT INFORMATION
  Report Type: Spontaneous
  Country: CH (occurrence: CH)
  Receive Date: 20200617
  Receipt Date: 20200617
  Transmission Date: 20200714
  Serious: Yes (Hospitalization, Other)
  Sender: FDA-Public Use
  Company Number: CH-PFIZER INC-2020232153

PATIENT
  Age: 76 Year
  Sex: Female
  Weight: 62 kg

DRUGS (5)
  1. CONCOR [Suspect]
     Active Substance: BISOPROLOL FUMARATE
     Indication: CARDIAC FAILURE
     Dosage: 2.5 MG, DAILY
     Route: 048
     Dates: end: 20200430
  2. ZESTRIL [Suspect]
     Active Substance: LISINOPRIL
     Indication: CARDIAC FAILURE
     Dosage: 2.5 MG, DAILY
     Route: 048
     Dates: end: 20200430
  3. ALDACTONE [Suspect]
     Active Substance: SPIRONOLACTONE
     Indication: CARDIAC FAILURE
     Dosage: 25 MG
     Route: 048
     Dates: end: 20200430
  4. BENERVA [Concomitant]
     Active Substance: THIAMINE HYDROCHLORIDE
     Dosage: 300 MG, DAILY
  5. BECOZYM [VITAMIN B NOS] [Concomitant]
     Dosage: 300 MG, DAILY

REACTIONS (1)
  - Hepatitis cholestatic [Recovering/Resolving]

NARRATIVE: CASE EVENT DATE: 20200424
